FAERS Safety Report 4722562-7 (Version None)
Quarter: 2005Q3

REPORT INFORMATION
  Report Type: 
  Country: None (occurrence: None)
  Receive Date: 20050722
  Receipt Date: 20050714
  Transmission Date: 20060218
  Serious: Yes (Hospitalization, Other)
  Sender: FDA-Public Use
  Company Number: PHBS2005US10128

PATIENT
  Age: 48 Year
  Sex: Male

DRUGS (6)
  1. CYCLOSPORINE [Suspect]
     Indication: HEART TRANSPLANT
     Dosage: 200 MG/D
  2. POTASSIUM CHLORIDE [Concomitant]
     Dosage: 20 MEQ/D
  3. SPIRONOLACTONE [Concomitant]
     Dosage: 25 MG/D
  4. LORATADINE [Concomitant]
     Dosage: 10 MG/D
  5. AZATHIOPRINE [Concomitant]
     Indication: HEART TRANSPLANT
     Dosage: 50 MG/D
  6. PREDNISONE [Concomitant]
     Indication: HEART TRANSPLANT

REACTIONS (19)
  - ACUTE MYOCARDIAL INFARCTION [None]
  - ARTERIAL STENOSIS [None]
  - ARTERIOPATHIC DISEASE [None]
  - ARTERIOSPASM CORONARY [None]
  - BLOOD CREATINE PHOSPHOKINASE INCREASED [None]
  - BLOOD CREATINE PHOSPHOKINASE MB INCREASED [None]
  - BUNDLE BRANCH BLOCK RIGHT [None]
  - CARDIOMEGALY [None]
  - CATHETERISATION CARDIAC [None]
  - CHEST PAIN [None]
  - DYSPNOEA [None]
  - ELECTROCARDIOGRAM ST SEGMENT ELEVATION [None]
  - HEART TRANSPLANT REJECTION [None]
  - HYPERHIDROSIS [None]
  - NAUSEA [None]
  - PULMONARY CONGESTION [None]
  - SINUS TACHYCARDIA [None]
  - TROPONIN I INCREASED [None]
  - VOMITING [None]
